FAERS Safety Report 19243428 (Version 1)
Quarter: 2021Q2

REPORT INFORMATION
  Report Type: Spontaneous
  Country: CN (occurrence: CN)
  Receive Date: 20210511
  Receipt Date: 20210511
  Transmission Date: 20210717
  Serious: Yes (Other)
  Sender: FDA-Public Use
  Company Number: CN-BAXTER-2021BAX010095

PATIENT
  Age: 22 Year
  Sex: Female
  Weight: 52 kg

DRUGS (5)
  1. ENDOXAN [Suspect]
     Active Substance: CYCLOPHOSPHAMIDE
     Indication: SYSTEMIC LUPUS ERYTHEMATOSUS
     Dosage: ENDOXAN INJECTION 0.4G + 0.9% SODIUM CHLORIDE INJECTION 250ML
     Route: 041
     Dates: start: 20210302, end: 20210303
  2. ENDOXAN [Suspect]
     Active Substance: CYCLOPHOSPHAMIDE
     Indication: CUTANEOUS VASCULITIS
     Dosage: ENDOXAN INJECTION 0.6G + 0.9% SODIUM CHLORIDE INJECTION 250ML
     Route: 041
     Dates: start: 20210303, end: 20210303
  3. 0.9% SODIUM CHLORIDE INJECTION [Suspect]
     Active Substance: SODIUM CHLORIDE
     Indication: MEDICATION DILUTION
     Dosage: ENDOXAN INJECTION 0.4G + 0.9% SODIUM CHLORIDE INJECTION 250ML
     Route: 041
     Dates: start: 20210302, end: 20210303
  4. 0.9% SODIUM CHLORIDE INJECTION [Suspect]
     Active Substance: SODIUM CHLORIDE
     Dosage: ENDOXAN INJECTION 0.4G + 0.9% SODIUM CHLORIDE INJECTION 250ML
     Route: 041
     Dates: start: 20210303, end: 20210303
  5. ENDOXAN [Suspect]
     Active Substance: CYCLOPHOSPHAMIDE
     Indication: SJOGREN^S SYNDROME

REACTIONS (2)
  - Neutrophil count decreased [Recovered/Resolved]
  - Leukopenia [Recovered/Resolved]

NARRATIVE: CASE EVENT DATE: 20210406
